FAERS Safety Report 10304280 (Version 3)
Quarter: 2014Q4

REPORT INFORMATION
  Report Type: Spontaneous
  Country: TR (occurrence: TR)
  Receive Date: 20140714
  Receipt Date: 20141028
  Transmission Date: 20150528
  Serious: Yes (Death, Other)
  Sender: FDA-Public Use
  Company Number: TR-BRACCO-000058

PATIENT
  Age: 72 Year
  Sex: Male

DRUGS (1)
  1. IOPAMIRO [Suspect]
     Active Substance: IOPAMIDOL
     Indication: COMPUTERISED TOMOGRAM
     Route: 042
     Dates: start: 20140619, end: 20140619

REACTIONS (3)
  - Hypertension [Unknown]
  - Pyrexia [Unknown]
  - Pancytopenia [Fatal]

NARRATIVE: CASE EVENT DATE: 20140619
